FAERS Safety Report 13234126 (Version 1)
Quarter: 2017Q1

REPORT INFORMATION
  Report Type: Spontaneous
  Country: US (occurrence: US)
  Receive Date: 20170214
  Receipt Date: 20170214
  Transmission Date: 20170428
  Serious: No
  Sender: FDA-Public Use
  Company Number: None

PATIENT
  Age: 78 Year
  Sex: Female
  Weight: 51.75 kg

DRUGS (12)
  1. SIMVASTATIN. [Concomitant]
     Active Substance: SIMVASTATIN
  2. BABY ASPIRIN [Concomitant]
     Active Substance: ASPIRIN
  3. HYDROCHLOROTHIAZIDE. [Concomitant]
     Active Substance: HYDROCHLOROTHIAZIDE
  4. CITRUCEL [Concomitant]
     Active Substance: METHYLCELLULOSE (4000 MPA.S)
  5. FISH OIL [Concomitant]
     Active Substance: FISH OIL
  6. CALCIUM [Concomitant]
     Active Substance: CALCIUM
  7. NUPLAZID [Suspect]
     Active Substance: PIMAVANSERIN TARTRATE
     Indication: HALLUCINATION
     Dates: start: 20161214, end: 20161216
  8. SINEMET [Concomitant]
     Active Substance: CARBIDOPA\LEVODOPA
  9. TOPIRAMATE. [Concomitant]
     Active Substance: TOPIRAMATE
  10. ACYCLOVIR. [Concomitant]
     Active Substance: ACYCLOVIR
  11. GLUCOSAMINE [Concomitant]
     Active Substance: GLUCOSAMINE
  12. VITAMIN D [Concomitant]
     Active Substance: CHOLECALCIFEROL

REACTIONS (5)
  - Restlessness [None]
  - Delusion [None]
  - Hallucination [None]
  - Confusional state [None]
  - Condition aggravated [None]

NARRATIVE: CASE EVENT DATE: 20161214
